FAERS Safety Report 17690255 (Version 4)
Quarter: 2021Q2

REPORT INFORMATION
  Report Type: Report from Study
  Country: IN (occurrence: IN)
  Receive Date: 20200421
  Receipt Date: 20210514
  Transmission Date: 20210716
  Serious: Yes (Death, Hospitalization)
  Sender: FDA-Public Use
  Company Number: NVSC2020IN106258

PATIENT
  Age: 56 Year
  Sex: Male

DRUGS (5)
  1. VOTRIENT [Suspect]
     Active Substance: PAZOPANIB HYDROCHLORIDE
     Dosage: 400 MG, BID
     Route: 065
     Dates: start: 20210128
  2. VOTRIENT [Suspect]
     Active Substance: PAZOPANIB HYDROCHLORIDE
     Dosage: 800 MG, QD
     Route: 048
     Dates: start: 20191023, end: 20210127
  3. VOTRIENT [Suspect]
     Active Substance: PAZOPANIB HYDROCHLORIDE
     Dosage: 400 MG, BID
     Route: 065
     Dates: start: 20210120, end: 20210420
  4. VOTRIENT [Suspect]
     Active Substance: PAZOPANIB HYDROCHLORIDE
     Dosage: 400 MG, QD
     Route: 048
     Dates: start: 20190529, end: 20191022
  5. VOTRIENT [Suspect]
     Active Substance: PAZOPANIB HYDROCHLORIDE
     Indication: RENAL CELL CARCINOMA
     Dosage: 800 MG, QD
     Route: 048
     Dates: start: 20181001, end: 20190527

REACTIONS (13)
  - Pleural effusion [Unknown]
  - Decreased appetite [Unknown]
  - Renal cell carcinoma [Fatal]
  - Malignant neoplasm progression [Fatal]
  - Drug intolerance [Unknown]
  - Back pain [Unknown]
  - Mouth ulceration [Unknown]
  - Product dose omission issue [Unknown]
  - Gingival bleeding [Unknown]
  - Pulmonary pain [Unknown]
  - Skin discolouration [Unknown]
  - Skin ulcer [Unknown]
  - Dyspnoea [Unknown]

NARRATIVE: CASE EVENT DATE: 201905
